FAERS Safety Report 18913603 (Version 1)
Quarter: 2021Q1

REPORT INFORMATION
  Report Type: Spontaneous
  Country: US (occurrence: US)
  Receive Date: 20210218
  Receipt Date: 20210218
  Transmission Date: 20210420
  Serious: No
  Sender: FDA-Public Use
  Company Number: US-NOVOPROD-754704

PATIENT
  Sex: Female

DRUGS (1)
  1. VICTOZA [Suspect]
     Active Substance: LIRAGLUTIDE
     Indication: PRODUCT USED FOR UNKNOWN INDICATION
     Dosage: USED 2 TO 3 YEARS AGO
     Route: 058

REACTIONS (3)
  - Vomiting [Recovered/Resolved]
  - Injection site laceration [Recovered/Resolved]
  - Feeling abnormal [Recovered/Resolved]
